FAERS Safety Report 11544323 (Version 1)
Quarter: 2015Q3

REPORT INFORMATION
  Report Type: Spontaneous
  Country: US (occurrence: US)
  Receive Date: 20150924
  Receipt Date: 20150924
  Transmission Date: 20151125
  Serious: Yes (Hospitalization)
  Sender: FDA-Public Use
  Company Number: US-ASTRAZENECA-2015SE89847

PATIENT
  Age: 37 Year
  Sex: Male
  Weight: 114.6 kg

DRUGS (9)
  1. PRILOSEC [Suspect]
     Active Substance: OMEPRAZOLE MAGNESIUM
     Indication: GASTROOESOPHAGEAL REFLUX DISEASE
     Route: 048
     Dates: start: 1989
  2. XANAX [Concomitant]
     Active Substance: ALPRAZOLAM
     Indication: PANIC ATTACK
     Route: 048
     Dates: start: 1998
  3. VALIUM [Concomitant]
     Active Substance: DIAZEPAM
     Indication: BACK PAIN
     Route: 048
  4. NEXIUM [Suspect]
     Active Substance: ESOMEPRAZOLE MAGNESIUM
     Indication: GASTRINOMA
     Dosage: GENERIC PRODUCT, 43.3 MG DAILY
     Route: 048
     Dates: start: 2015
  5. XANAX [Concomitant]
     Active Substance: ALPRAZOLAM
     Indication: BACK PAIN
     Route: 048
     Dates: start: 1998
  6. NEXIUM [Suspect]
     Active Substance: ESOMEPRAZOLE MAGNESIUM
     Indication: GASTRINOMA
     Route: 048
     Dates: start: 2001
  7. XANAX [Concomitant]
     Active Substance: ALPRAZOLAM
     Indication: ANXIETY
     Route: 048
     Dates: start: 1998
  8. PRILOSEC [Suspect]
     Active Substance: OMEPRAZOLE MAGNESIUM
     Indication: GASTRINOMA
     Route: 048
     Dates: start: 1989
  9. NEXIUM [Suspect]
     Active Substance: ESOMEPRAZOLE MAGNESIUM
     Indication: GASTRINOMA
     Dosage: UNKNOWN
     Route: 048
     Dates: start: 2014

REACTIONS (10)
  - Muscle tightness [Unknown]
  - Drug ineffective [Unknown]
  - Road traffic accident [Unknown]
  - Anxiety [Unknown]
  - Panic attack [Unknown]
  - Nephrolithiasis [Unknown]
  - Product substitution issue [Unknown]
  - Skull fracture [Unknown]
  - Back pain [Unknown]
  - Night sweats [Unknown]

NARRATIVE: CASE EVENT DATE: 1997
